FAERS Safety Report 9432846 (Version 1)
Quarter: 2013Q3

REPORT INFORMATION
  Report Type: Spontaneous
  Country: DK (occurrence: DK)
  Receive Date: 20130731
  Receipt Date: 20130731
  Transmission Date: 20140515
  Serious: Yes (Life-Threatening, Hospitalization)
  Sender: FDA-Public Use
  Company Number: DK-UCBSA-092917

PATIENT
  Age: 65 Year
  Sex: Female
  Weight: 52.5 kg

DRUGS (2)
  1. CIMZIA [Suspect]
     Indication: RHEUMATOID ARTHRITIS
     Dosage: DOSE: 200 MG EVERY TWO WEEK. STRENGHT: 200 MG????
     Route: 058
     Dates: start: 20120104, end: 20130619
  2. METHOTREXAT [Concomitant]
     Indication: RHEUMATOID ARTHRITIS
     Dates: start: 2002

REACTIONS (1)
  - Hodgkin^s disease mixed cellularity stage III [Not Recovered/Not Resolved]
